FAERS Safety Report 8052873-1 (Version None)
Quarter: 2012Q1

REPORT INFORMATION
  Report Type: 
  Country: None (occurrence: None)
  Receive Date: 20120117
  Receipt Date: 20120117
  Transmission Date: 20120608
  Serious: Yes (Hospitalization)
  Sender: FDA-Public Use
  Company Number: None

PATIENT
  Sex: Male
  Weight: 85 kg

DRUGS (2)
  1. CISPLATIN [Suspect]
     Dosage: 199 MG
     Dates: start: 20120103
  2. CISPLATIN [Suspect]
     Dosage: 199 MG
     Dates: start: 20111212

REACTIONS (5)
  - VOMITING [None]
  - MUCOSAL INFLAMMATION [None]
  - NAUSEA [None]
  - OROPHARYNGEAL PAIN [None]
  - DIARRHOEA [None]
